FAERS Safety Report 8131844-0 (Version None)
Quarter: 2012Q1

REPORT INFORMATION
  Report Type: 
  Country: None (occurrence: None)
  Receive Date: 20120213
  Receipt Date: 20120210
  Transmission Date: 20120608
  Serious: Yes (Other)
  Sender: FDA-Public Use
  Company Number: US-PFIZER INC-2012037160

PATIENT
  Sex: Female
  Weight: 68.027 kg

DRUGS (2)
  1. GEODON [Suspect]
     Dosage: UNK
     Route: 048
     Dates: start: 20120201
  2. GEODON [Suspect]
     Indication: BIPOLAR DISORDER
     Dosage: 60 MG, 1X/DAY
     Route: 048
     Dates: start: 20120201, end: 20120201

REACTIONS (1)
  - MYDRIASIS [None]
